FAERS Safety Report 10215637 (Version 1)
Quarter: 2014Q2

REPORT INFORMATION
  Report Type: Spontaneous
  Country: AT (occurrence: None)
  Receive Date: 20140602
  Receipt Date: 20140602
  Transmission Date: 20141212
  Serious: Yes (Other)
  Sender: FDA-Public Use
  Company Number: AT 2009 0005

PATIENT
  Age: 62 Year
  Sex: Female

DRUGS (3)
  1. GADOTERIC ACID [Suspect]
     Indication: NUCLEAR MAGNETIC RESONANCE IMAGING
     Route: 042
     Dates: start: 20030612, end: 20030612
  2. GADOPENTETATE MEGLUMINE [Suspect]
     Indication: PRODUCT USED FOR UNKNOWN INDICATION
     Route: 042
     Dates: start: 20120922
  3. GADODIAMIDE [Suspect]
     Indication: PRODUCT USED FOR UNKNOWN INDICATION
     Route: 042
     Dates: start: 19980422, end: 19980422

REACTIONS (1)
  - Nephrogenic systemic fibrosis [None]
